FAERS Safety Report 17572537 (Version 1)
Quarter: 2020Q1

REPORT INFORMATION
  Report Type: Spontaneous
  Country: US (occurrence: US)
  Receive Date: 20200323
  Receipt Date: 20200323
  Transmission Date: 20200409
  Serious: No
  Sender: FDA-Public Use
  Company Number: US-LUNDBECK-DKLU3013808

PATIENT
  Age: 16 Year
  Sex: Female
  Weight: 86 kg

DRUGS (4)
  1. NORTHERA [Suspect]
     Active Substance: DROXIDOPA
     Indication: AUTONOMIC NEUROPATHY
  2. NORTHERA [Suspect]
     Active Substance: DROXIDOPA
     Indication: SYNCOPE
  3. NORTHERA [Suspect]
     Active Substance: DROXIDOPA
     Indication: RILEY-DAY SYNDROME
     Route: 048
  4. NORTHERA [Suspect]
     Active Substance: DROXIDOPA
     Indication: SJOGREN^S SYNDROME

REACTIONS (2)
  - Dyspnoea [Unknown]
  - Headache [Unknown]
